FAERS Safety Report 6611426-X (Version None)
Quarter: 2010Q1

REPORT INFORMATION
  Report Type: 
  Country: None (occurrence: None)
  Receive Date: 20100218
  Receipt Date: 20100107
  Transmission Date: 20100710
  Serious: No
  Sender: FDA-Public Use
  Company Number: WAES 1001USA00323

PATIENT
  Age: 20 Year
  Sex: Male

DRUGS (2)
  1. ISENTRESS [Suspect]
     Dosage: PO
     Route: 048
     Dates: start: 20091201
  2. TRUVADA [Concomitant]

REACTIONS (2)
  - INCREASED APPETITE [None]
  - IRRITABILITY [None]
